FAERS Safety Report 9206771 (Version 2)
Quarter: 2013Q2

REPORT INFORMATION
  Report Type: Report from Study
  Country: US (occurrence: US)
  Receive Date: 20130403
  Receipt Date: 20130416
  Transmission Date: 20140414
  Serious: No
  Sender: FDA-Public Use
  Company Number: US-VERTEX PHARMACEUTICALS INC.-2013-004379

PATIENT
  Sex: Male

DRUGS (3)
  1. VX-950 (TELAPREVIR) [Suspect]
     Indication: HEPATITIS C
     Dosage: 750 MG, TID
     Route: 048
     Dates: start: 20130321
  2. PEGASYS [Suspect]
     Indication: HEPATITIS C
     Dosage: 180 ?G, QW
     Route: 048
     Dates: start: 20130321
  3. RIBASPHERE [Suspect]
     Indication: HEPATITIS C
     Dosage: 600 MG IN AM; 400 MG IN PM, QD
     Route: 048
     Dates: start: 20130321

REACTIONS (10)
  - Weight increased [Unknown]
  - Musculoskeletal stiffness [Recovered/Resolved]
  - Abnormal sensation in eye [Unknown]
  - Visual impairment [Unknown]
  - Headache [Recovered/Resolved]
  - Back pain [Unknown]
  - Myalgia [Unknown]
  - Rectal discharge [Unknown]
  - Fatigue [Unknown]
  - Diarrhoea [Unknown]
